FAERS Safety Report 17109561 (Version 1)
Quarter: 2019Q4

REPORT INFORMATION
  Report Type: Spontaneous
  Country: US (occurrence: US)
  Receive Date: 20191108
  Receipt Date: 20191108
  Transmission Date: 20200122
  Serious: No
  Sender: FDA-Public Use
  Company Number: None

PATIENT

DRUGS (2)
  1. VINCRISTINE SULFATE. [Suspect]
     Active Substance: VINCRISTINE SULFATE
     Route: 042
  2. CARBOPLATIN. [Suspect]
     Active Substance: CARBOPLATIN

REACTIONS (2)
  - Product packaging confusion [None]
  - Product label confusion [None]
